FAERS Safety Report 6104769-X (Version None)
Quarter: 2009Q1

REPORT INFORMATION
  Report Type: 
  Country: None (occurrence: None)
  Receive Date: 20090304
  Receipt Date: 20090304
  Transmission Date: 20090719
  Serious: Yes (Hospitalization)
  Sender: FDA-Public Use
  Company Number: None

PATIENT
  Age: 74 Year
  Sex: Male
  Weight: 92.6 kg

DRUGS (2)
  1. LAPATINIB [Suspect]
     Indication: PROSTATE CANCER
     Dosage: 1500 MG INTERMITT. DOSING PO
     Route: 048
     Dates: end: 20090130
  2. NAVELBINE [Suspect]
     Indication: PROSTATE CANCER
     Dosage: 20 MG/M2 D1,8,15 IV
     Route: 042
     Dates: end: 20090128

REACTIONS (4)
  - ADRENAL INSUFFICIENCY [None]
  - ASTHENIA [None]
  - FATIGUE [None]
  - PYREXIA [None]
